FAERS Safety Report 4318729-2 (Version None)
Quarter: 2004Q1

REPORT INFORMATION
  Report Type: 
  Country: None (occurrence: None)
  Receive Date: 20040317
  Receipt Date: 20040317
  Transmission Date: 20041129
  Serious: Yes (Hospitalization)
  Sender: FDA-Public Use
  Company Number: None

PATIENT
  Sex: Male
  Weight: 92.5338 kg

DRUGS (2)
  1. ZOCOR 80 MGM [Suspect]
     Indication: HYPERLIPIDAEMIA
     Dosage: ONCE PO QHS
     Route: 048
     Dates: start: 20010101, end: 20040201
  2. NIASPAN [Suspect]
     Indication: HYPERLIPIDAEMIA
     Dosage: 2 P.O QHS
     Route: 048
     Dates: start: 20010101, end: 20040201

REACTIONS (4)
  - ASTHENIA [None]
  - BLOOD CREATINE PHOSPHOKINASE INCREASED [None]
  - FALL [None]
  - WHEELCHAIR USER [None]
